FAERS Safety Report 24077112 (Version 1)
Quarter: 2024Q3

REPORT INFORMATION
  Report Type: Report from Study
  Country: GB (occurrence: GB)
  Receive Date: 20240711
  Receipt Date: 20240711
  Transmission Date: 20241016
  Serious: No
  Sender: SANDOZ
  Company Number: GB-SANDOZ-SDZ2024GB001089

PATIENT
  Sex: Female

DRUGS (1)
  1. HYRIMOZ [Suspect]
     Active Substance: ADALIMUMAB-ADAZ
     Indication: Psoriatic arthropathy
     Dosage: 40 MG, Q2W
     Route: 058

REACTIONS (3)
  - Incorrect dose administered [Unknown]
  - Device delivery system issue [Unknown]
  - Device leakage [Unknown]
